FAERS Safety Report 24405808 (Version 1)
Quarter: 2024Q4

REPORT INFORMATION
  Report Type: Report from Study
  Country: US (occurrence: US)
  Receive Date: 20241007
  Receipt Date: 20241007
  Transmission Date: 20250115
  Serious: Yes (Hospitalization, Other)
  Sender: AMNEAL
  Company Number: US-AMNEAL PHARMACEUTICALS-2024-AMRX-01273

PATIENT
  Age: 69 Year
  Sex: Female

DRUGS (5)
  1. CARBIDOPA\LEVODOPA [Suspect]
     Active Substance: CARBIDOPA\LEVODOPA
     Indication: Parkinson^s disease
     Dosage: 4 (23.75-95 MG) CAPSULES, 5 /DAY (6 AM, 10 AM, 2 PM, 6 PM AND 10 PM)
     Route: 048
  2. CARBIDOPA\LEVODOPA [Suspect]
     Active Substance: CARBIDOPA\LEVODOPA
     Dosage: (23.75-9 5MG) 5 CAPSULES AT 6 AM, 4 CAPSULES AT 10 AM, 2 PM, 6PM AND 10 PM.
     Route: 048
     Dates: start: 20240506
  3. CARBIDOPA\LEVODOPA [Suspect]
     Active Substance: CARBIDOPA\LEVODOPA
     Dosage: (23.75-9 5MG) 5 CAPSULES AT 6 AM AND 10 PM, AND 4 CAPSULES AT 10 AM, 2 PM, AND 6 PM
     Route: 048
     Dates: start: 20240515
  4. CARBIDOPA\LEVODOPA [Suspect]
     Active Substance: CARBIDOPA\LEVODOPA
     Dosage: (23.75-9 5MG) 5 CAPSULES AT 6 AM AND 10 PM AND 10 AM, AND 4 CAPSULES AT 2 PM, AND 6 PM
     Route: 048
     Dates: start: 20240701
  5. CARBIDOPA\LEVODOPA [Suspect]
     Active Substance: CARBIDOPA\LEVODOPA
     Dosage: (23.75-9 5MG) 5 CAPSULES AT 6 AM, 2 PM, 10 PM AND 10 AM, AND 04 CAPSULES AT 6 PM
     Route: 048
     Dates: start: 20240820

REACTIONS (4)
  - Hospitalisation [Unknown]
  - Parkinson^s disease [Unknown]
  - Pain [Unknown]
  - Adverse event [Unknown]

NARRATIVE: CASE EVENT DATE: 20240606
